FAERS Safety Report 9802169 (Version 2)
Quarter: 2014Q1

REPORT INFORMATION
  Report Type: Report from Study
  Country: AU (occurrence: AU)
  Receive Date: 20140107
  Receipt Date: 20140124
  Transmission Date: 20141002
  Serious: Yes (Other)
  Sender: FDA-Public Use
  Company Number: PHHY2014AU001336

PATIENT
  Sex: Female

DRUGS (2)
  1. CLOZARIL [Suspect]
     Dosage: 25 MG,
     Dates: start: 20120927, end: 20131216
  2. CLOZARIL [Suspect]
     Dosage: UNK MG, UNK
     Dates: end: 20140116

REACTIONS (1)
  - Ejection fraction decreased [Unknown]
